FAERS Safety Report 24591542 (Version 1)
Quarter: 2024Q4

REPORT INFORMATION
  Report Type: Spontaneous
  Country: CH (occurrence: CH)
  Receive Date: 20241108
  Receipt Date: 20241108
  Transmission Date: 20250115
  Serious: Yes (Hospitalization, Other)
  Sender: SANOFI AVENTIS
  Company Number: None

PATIENT
  Age: 81 Year
  Sex: Male

DRUGS (7)
  1. PLAVIX [Suspect]
     Active Substance: CLOPIDOGREL BISULFATE
     Dosage: 300 MG, TOTAL
     Dates: start: 20240816, end: 20240816
  2. OXAZEPAM [Suspect]
     Active Substance: OXAZEPAM
     Dosage: 150 MG, TOTAL
     Dates: start: 20240816, end: 20240816
  3. TENORMIN [Suspect]
     Active Substance: ATENOLOL
     Dosage: 2000 MG, TOTAL
     Dates: start: 20240816, end: 20240816
  4. EXFORGE [Suspect]
     Active Substance: AMLODIPINE BESYLATE\VALSARTAN
     Dosage: 15 DF, TOTAL
     Dates: start: 20240816, end: 20240816
  5. ATORVASTATIN [Suspect]
     Active Substance: ATORVASTATIN
     Dosage: UNK
     Dates: start: 20240816, end: 20240816
  6. VESICARE [Suspect]
     Active Substance: SOLIFENACIN SUCCINATE
     Dosage: UNK
     Dates: start: 20240816, end: 20240816
  7. ANAFRANIL [Suspect]
     Active Substance: CLOMIPRAMINE HYDROCHLORIDE
     Dosage: UNK
     Dates: start: 20240816, end: 20240816

REACTIONS (7)
  - Loss of consciousness [Recovered/Resolved]
  - Bradycardia [Recovering/Resolving]
  - Miosis [Recovered/Resolved]
  - Oxygen saturation decreased [Unknown]
  - Mydriasis [Unknown]
  - Hypotension [Recovering/Resolving]
  - Intentional overdose [Recovered/Resolved]

NARRATIVE: CASE EVENT DATE: 20240816
